FAERS Safety Report 10265454 (Version 1)
Quarter: 2014Q2

REPORT INFORMATION
  Report Type: Spontaneous
  Country: US (occurrence: US)
  Receive Date: 20140627
  Receipt Date: 20140627
  Transmission Date: 20141212
  Serious: Yes (Other)
  Sender: FDA-Public Use
  Company Number: US-ASTRAZENECA-2014SE45926

PATIENT
  Age: 67 Year
  Sex: Male
  Weight: 97.5 kg

DRUGS (20)
  1. SYMBICORT [Suspect]
     Indication: ASTHMA
     Dosage: 2 PUFFS DAILY
     Route: 055
     Dates: start: 2004
  2. NEXIUM [Suspect]
     Indication: OESOPHAGITIS
     Route: 048
     Dates: start: 2001, end: 20140505
  3. NEXIUM [Suspect]
     Indication: HIATUS HERNIA
     Route: 048
     Dates: start: 2001, end: 20140505
  4. NEXIUM [Suspect]
     Indication: GASTROOESOPHAGEAL REFLUX DISEASE
     Route: 048
     Dates: start: 2001, end: 20140505
  5. NEXIUM [Suspect]
     Indication: OESOPHAGITIS
     Route: 048
  6. NEXIUM [Suspect]
     Indication: HIATUS HERNIA
     Route: 048
  7. NEXIUM [Suspect]
     Indication: GASTROOESOPHAGEAL REFLUX DISEASE
     Route: 048
  8. LISINOPRIL [Suspect]
     Indication: HYPERTENSION
     Route: 048
     Dates: start: 2000
  9. PRILOSEC [Suspect]
     Indication: INFLAMMATION
     Route: 048
     Dates: start: 2001, end: 2001
  10. PRILOSEC [Suspect]
     Indication: HIATUS HERNIA
     Route: 048
     Dates: start: 2001, end: 2001
  11. PRILOSEC [Suspect]
     Indication: GASTROOESOPHAGEAL REFLUX DISEASE
     Route: 048
     Dates: start: 2001, end: 2001
  12. CLONAZEPAM [Concomitant]
     Indication: MYOCLONUS
     Route: 048
  13. MIRTAZAPINE [Concomitant]
     Indication: MENTAL DISORDER
     Route: 048
     Dates: start: 201104
  14. RESPIRADONE [Concomitant]
     Indication: MENTAL DISORDER
     Route: 048
     Dates: start: 201106
  15. ENDOMETHACIN [Concomitant]
     Indication: GOUT
     Route: 048
     Dates: start: 2011
  16. HYDROCHLOROTHIAZIDE [Concomitant]
     Indication: BLOOD PRESSURE ABNORMAL
     Route: 048
     Dates: start: 2009
  17. MAX AIR [Concomitant]
     Indication: KINESITHERAPY
     Dosage: UNKNOWN PRN
     Route: 055
  18. CALCIUM [Concomitant]
     Dosage: UNKNOWN UNK
  19. VITAMIN D3 [Concomitant]
     Dosage: UNKNOWN UNK
  20. MAGNESIUM [Concomitant]
     Dosage: UNKNOWN UNK

REACTIONS (9)
  - Nasal septum deviation [Unknown]
  - Gastrooesophageal reflux disease [Unknown]
  - Oesophageal stenosis [Unknown]
  - Abdominal pain upper [Unknown]
  - Myoclonus [Unknown]
  - Diarrhoea [Unknown]
  - Depression [Unknown]
  - Off label use [Unknown]
  - Intentional product misuse [Unknown]
